FAERS Safety Report 24967429 (Version 1)
Quarter: 2025Q1

REPORT INFORMATION
  Report Type: Spontaneous
  Country: DE (occurrence: DE)
  Receive Date: 20250214
  Receipt Date: 20250214
  Transmission Date: 20250409
  Serious: No
  Sender: ALKEM
  Company Number: DE-ALKEM LABORATORIES LIMITED-DE-ALKEM-2024-26543

PATIENT
  Age: 50 Year
  Sex: Male

DRUGS (12)
  1. FINGOLIMOD [Suspect]
     Active Substance: FINGOLIMOD
     Indication: Relapsing multiple sclerosis
     Dosage: 0.5 MILLIGRAM, QD
     Route: 048
     Dates: start: 20190822
  2. ALFUZOSIN [Concomitant]
     Active Substance: ALFUZOSIN
     Indication: Neurogenic bladder
     Dosage: 10 MILLIGRAM, QD
     Route: 048
     Dates: start: 20230905
  3. BACLOFEN [Concomitant]
     Active Substance: BACLOFEN
     Indication: Product used for unknown indication
     Route: 048
     Dates: start: 20200915, end: 20201201
  4. BACLOFEN [Concomitant]
     Active Substance: BACLOFEN
     Dosage: 10 MILLIGRAM, QD
     Route: 048
     Dates: start: 20240116
  5. Comirnaty [Concomitant]
     Indication: Prophylaxis
     Dosage: UNK, QD
     Route: 030
     Dates: start: 20210607, end: 20210607
  6. Comirnaty [Concomitant]
     Dosage: UNK, QD
     Route: 030
     Dates: start: 20231023, end: 20231023
  7. Comirnaty [Concomitant]
     Dosage: UNK, QD
     Route: 030
     Dates: start: 20210510, end: 20210510
  8. Comirnaty [Concomitant]
     Dosage: UNK, QD
     Route: 030
  9. CHOLECALCIFEROL [Concomitant]
     Active Substance: CHOLECALCIFEROL
     Indication: Vitamin D deficiency
     Dosage: 2000 INTERNATIONAL UNIT, ONCE WEEKLY
     Route: 048
  10. Spasmex [Concomitant]
     Indication: Neurogenic bladder
     Route: 048
     Dates: start: 20230905
  11. Spasmex [Concomitant]
     Dosage: 30 MILLIGRAM, QD
     Route: 048
     Dates: start: 20230928
  12. METHYLPREDNISOLONE SODIUM SUCCINATE [Concomitant]
     Active Substance: METHYLPREDNISOLONE SODIUM SUCCINATE
     Indication: Multiple sclerosis relapse
     Route: 042
     Dates: start: 20210915, end: 20210919

REACTIONS (2)
  - Eosinophilic oesophagitis [Recovered/Resolved]
  - Lymphopenia [Not Recovered/Not Resolved]

NARRATIVE: CASE EVENT DATE: 20210803
